FAERS Safety Report 14840033 (Version 5)
Quarter: 2018Q3

REPORT INFORMATION
  Report Type: Report from Study
  Country: DE (occurrence: DE)
  Receive Date: 20180503
  Receipt Date: 20180919
  Transmission Date: 20181010
  Serious: Yes (Death, Hospitalization, Other)
  Sender: FDA-Public Use
  Company Number: DE-ROCHE-1992513

PATIENT
  Age: 80 Year
  Sex: Female
  Weight: 56 kg

DRUGS (18)
  1. PERTUZUMAB. [Suspect]
     Active Substance: PERTUZUMAB
     Indication: HER-2 POSITIVE BREAST CANCER
     Dosage: MOST RECENT DOSE ON 17/AUG/2017
     Route: 042
     Dates: start: 20170505
  2. TORASEMID [Suspect]
     Active Substance: TORSEMIDE
     Indication: PRODUCT USED FOR UNKNOWN INDICATION
     Route: 065
  3. DOCETAXEL. [Suspect]
     Active Substance: DOCETAXEL
     Indication: HER-2 POSITIVE BREAST CANCER
     Route: 065
  4. L?THYROXIN [Suspect]
     Active Substance: LEVOTHYROXINE SODIUM
     Indication: HYPOTHYROIDISM
     Route: 048
     Dates: start: 20060630
  5. DOXEPIN [Concomitant]
     Active Substance: DOXEPIN
     Route: 048
  6. TRASTUZUMAB. [Suspect]
     Active Substance: TRASTUZUMAB
     Indication: HER-2 POSITIVE BREAST CANCER
     Dosage: 120?600 MG
     Route: 042
     Dates: start: 20170505
  7. XGEVA [Suspect]
     Active Substance: DENOSUMAB
     Route: 058
     Dates: start: 20170421
  8. DOXEPIN [Concomitant]
     Active Substance: DOXEPIN
     Indication: DEPRESSION
     Route: 048
     Dates: start: 20050630
  9. TRASTUZUMAB. [Suspect]
     Active Substance: TRASTUZUMAB
     Dosage: 120 TO 600 MG
     Route: 042
     Dates: start: 20170817
  10. LETROZOL [Suspect]
     Active Substance: LETROZOLE
     Route: 065
  11. PACLITAXEL. [Suspect]
     Active Substance: PACLITAXEL
     Indication: HER-2 POSITIVE BREAST CANCER
     Dosage: 80?134.4 MG/M2
     Route: 042
     Dates: start: 20170505, end: 20170810
  12. BISOHEXAL [Concomitant]
     Active Substance: BISOPROLOL FUMARATE
     Route: 048
  13. TRASTUZUMAB. [Suspect]
     Active Substance: TRASTUZUMAB
     Route: 042
     Dates: start: 20180103
  14. XGEVA [Suspect]
     Active Substance: DENOSUMAB
     Indication: HER-2 POSITIVE BREAST CANCER
     Route: 058
     Dates: start: 20170421
  15. MIRTAZAPIN [Suspect]
     Active Substance: MIRTAZAPINE
     Indication: DEPRESSION
     Route: 048
     Dates: start: 20050630
  16. LETROZOL [Suspect]
     Active Substance: LETROZOLE
     Indication: HER-2 POSITIVE BREAST CANCER
     Route: 048
     Dates: start: 20170916
  17. BISOHEXAL [Concomitant]
     Active Substance: BISOPROLOL FUMARATE
     Indication: HYPERTENSION
     Route: 048
     Dates: start: 19980630
  18. XARELTO [Concomitant]
     Active Substance: RIVAROXABAN
     Indication: ATRIAL FIBRILLATION
     Route: 048
     Dates: start: 20150630

REACTIONS (10)
  - Metastases to liver [Unknown]
  - Cystitis [Recovered/Resolved]
  - Asthenia [Fatal]
  - Nausea [Recovered/Resolved]
  - Metastases to bone [Unknown]
  - Dysaesthesia [Recovered/Resolved]
  - Mastectomy [Recovered/Resolved]
  - Left ventricular dysfunction [Not Recovered/Not Resolved]
  - Fatigue [Not Recovered/Not Resolved]
  - Ill-defined disorder [Recovered/Resolved]

NARRATIVE: CASE EVENT DATE: 20170421
